FAERS Safety Report 17972178 (Version 1)
Quarter: 2020Q3

REPORT INFORMATION
  Report Type: Spontaneous
  Country: HU (occurrence: HU)
  Receive Date: 20200702
  Receipt Date: 20200702
  Transmission Date: 20201103
  Serious: Yes (Hospitalization, Other)
  Sender: FDA-Public Use
  Company Number: HU-SUN PHARMACEUTICAL INDUSTRIES LTD-2020RR-252171

PATIENT
  Age: 10 Year
  Sex: Male

DRUGS (3)
  1. CEFTRIAXONE. [Suspect]
     Active Substance: CEFTRIAXONE
     Indication: PNEUMONIA MYCOPLASMAL
     Dosage: UNK ()
     Route: 065
  2. AMOXICILLIN. [Suspect]
     Active Substance: AMOXICILLIN
     Indication: PNEUMONIA MYCOPLASMAL
     Dosage: UNK ()
     Route: 065
  3. CLARITHROMYCIN. [Suspect]
     Active Substance: CLARITHROMYCIN
     Indication: PNEUMONIA MYCOPLASMAL
     Dosage: UNK ()
     Route: 065

REACTIONS (8)
  - Pneumonia mycoplasmal [Unknown]
  - Disease progression [Recovered/Resolved]
  - Oral mucosal blistering [Recovered/Resolved]
  - Vomiting [Unknown]
  - Conjunctivitis [Recovered/Resolved]
  - Erythema annulare [Recovered/Resolved]
  - Stomatitis [Unknown]
  - Dysphagia [Recovering/Resolving]
